FAERS Safety Report 18147564 (Version 1)
Quarter: 2020Q3

REPORT INFORMATION
  Report Type: Spontaneous
  Country: CA (occurrence: CA)
  Receive Date: 20200813
  Receipt Date: 20200813
  Transmission Date: 20201103
  Serious: Yes (Other)
  Sender: FDA-Public Use
  Company Number: CA-TEVA-2020-CA-1812802

PATIENT
  Age: 78 Year
  Sex: Female

DRUGS (14)
  1. TRELEGY ELLIPTA [Concomitant]
     Active Substance: FLUTICASONE FUROATE\UMECLIDINIUM BROMIDE\VILANTEROL TRIFENATATE
  2. KEYTRUDA [Suspect]
     Active Substance: PEMBROLIZUMAB
     Indication: NEOPLASM MALIGNANT
     Route: 065
  3. VITAMIN D [Concomitant]
     Active Substance: VITAMIN D NOS
  4. NYSTATIN ORAL SUSPENSION 100000UNIT/ML USP [Suspect]
     Active Substance: NYSTATIN
     Route: 065
  5. CALCIUM [Concomitant]
     Active Substance: CALCIUM
  6. GLYCERIN. [Suspect]
     Active Substance: GLYCERIN
     Route: 065
  7. LATANOPROST. [Concomitant]
     Active Substance: LATANOPROST
  8. PANTOPRAZOLE [Concomitant]
     Active Substance: PANTOPRAZOLE
  9. RISEDRONATE(MANUFACTURER UNKNOWN) [Concomitant]
     Active Substance: RISEDRONATE SODIUM
  10. VENTOLIN [Concomitant]
     Active Substance: ALBUTEROL SULFATE
  11. ZOPICLONE [Concomitant]
     Active Substance: ZOPICLONE
  12. HYDROCORTISONE. [Suspect]
     Active Substance: HYDROCORTISONE
     Route: 065
  13. SALINE [Suspect]
     Active Substance: SODIUM CHLORIDE
     Route: 065
  14. XYLOCAINE [Concomitant]
     Active Substance: LIDOCAINE HYDROCHLORIDE

REACTIONS (3)
  - Hypertension [Unknown]
  - Erythema [Unknown]
  - Dyspnoea [Unknown]
